FAERS Safety Report 15435819 (Version 7)
Quarter: 2018Q4

REPORT INFORMATION
  Report Type: Spontaneous
  Country: GB (occurrence: GB)
  Receive Date: 20180927
  Receipt Date: 20181116
  Transmission Date: 20190204
  Serious: Yes (Death)
  Sender: FDA-Public Use
  Company Number: GB-MYLANLABS-2018M1070793

PATIENT
  Age: 15 Year
  Sex: Female

DRUGS (1)
  1. EPIPEN [Suspect]
     Active Substance: EPINEPHRINE
     Indication: ANAPHYLACTIC SHOCK
     Dosage: 2 DF, UNK
     Dates: start: 20160717, end: 20160717

REACTIONS (2)
  - Needle issue [Fatal]
  - Drug ineffective [Fatal]

NARRATIVE: CASE EVENT DATE: 20160717
